FAERS Safety Report 5812162-X (Version None)
Quarter: 2008Q3

REPORT INFORMATION
  Report Type: 
  Country: None (occurrence: None)
  Receive Date: 20080716
  Receipt Date: 20080707
  Transmission Date: 20090109
  Serious: Yes (Hospitalization)
  Sender: FDA-Public Use
  Company Number: FR-ABBOTT-08P-056-0461747-00

PATIENT
  Sex: Male

DRUGS (7)
  1. DEPAKOTE [Suspect]
     Indication: DELIRIUM
     Route: 048
     Dates: start: 20080519
  2. DEPAKOTE [Suspect]
     Route: 048
     Dates: start: 20080513, end: 20080519
  3. DEPAKOTE [Suspect]
     Route: 048
     Dates: start: 20080509, end: 20080513
  4. LOXAPINE [Suspect]
     Indication: DRUG USE FOR UNKNOWN INDICATION
     Dates: start: 20080505
  5. RISPERIDONE [Suspect]
     Indication: DRUG USE FOR UNKNOWN INDICATION
     Dates: start: 20080514
  6. DIAZEPAM [Concomitant]
     Indication: DRUG USE FOR UNKNOWN INDICATION
     Dates: start: 20080505
  7. ENOXAPARIN SODIUM [Concomitant]
     Indication: DRUG USE FOR UNKNOWN INDICATION
     Dates: start: 20080505

REACTIONS (1)
  - ALANINE AMINOTRANSFERASE INCREASED [None]
